FAERS Safety Report 15515855 (Version 1)
Quarter: 2018Q4

REPORT INFORMATION
  Report Type: Spontaneous
  Country: FR (occurrence: FR)
  Receive Date: 20181017
  Receipt Date: 20181017
  Transmission Date: 20190205
  Serious: Yes (Death, Congenital Anomaly, Other)
  Sender: FDA-Public Use
  Company Number: FR-AUROBINDO-AUR-APL-2018-050512

PATIENT

DRUGS (1)
  1. ACICLOVIR [Suspect]
     Active Substance: ACYCLOVIR
     Indication: EXPOSURE TO COMMUNICABLE DISEASE
     Dosage: UNKNOWN DOSAGE
     Route: 064
     Dates: start: 20180130, end: 20180201

REACTIONS (2)
  - Spina bifida [Fatal]
  - Foetal exposure during pregnancy [Unknown]
